FAERS Safety Report 11243858 (Version 3)
Quarter: 2015Q3

REPORT INFORMATION
  Report Type: Spontaneous
  Country: US (occurrence: US)
  Receive Date: 20150707
  Receipt Date: 20150722
  Transmission Date: 20151125
  Serious: Yes (Other)
  Sender: FDA-Public Use
  Company Number: US-BAYER-2015-363219

PATIENT
  Age: 23 Year
  Sex: Female

DRUGS (1)
  1. MIRENA [Suspect]
     Active Substance: LEVONORGESTREL
     Indication: CONTRACEPTION
     Dosage: 20 MCG/24HR, CONT
     Route: 015
     Dates: start: 20141222, end: 20150622

REACTIONS (6)
  - Discomfort [None]
  - Device physical property issue [None]
  - Pain [None]
  - Genital haemorrhage [None]
  - Device expulsion [None]
  - Abdominal pain lower [None]

NARRATIVE: CASE EVENT DATE: 20150622
